FAERS Safety Report 16631413 (Version 4)
Quarter: 2020Q1

REPORT INFORMATION
  Report Type: Report from Study
  Country: GB (occurrence: GB)
  Receive Date: 20190725
  Receipt Date: 20200305
  Transmission Date: 20200409
  Serious: Yes (Other)
  Sender: FDA-Public Use
  Company Number: GB-MYLANLABS-2019M1069544

PATIENT
  Age: 78 Year
  Sex: Female

DRUGS (38)
  1. PERTUZUMAB. [Suspect]
     Active Substance: PERTUZUMAB
     Indication: BREAST CANCER METASTATIC
     Dosage: LOADIND DOSE
     Route: 042
     Dates: start: 20160225, end: 20160225
  2. DEXAMETHASONE. [Concomitant]
     Active Substance: DEXAMETHASONE
     Dosage: 16 MILLIGRAM, QD
     Route: 048
     Dates: start: 20160225
  3. SITAGLIPTIN [Concomitant]
     Active Substance: SITAGLIPTIN
     Dosage: 100 MILLIGRAM, QD
     Route: 048
  4. TRAMADOL HYDROCHLORIDE. [Concomitant]
     Active Substance: TRAMADOL HYDROCHLORIDE
     Dosage: 200 MILLIGRAM, QD
     Route: 048
     Dates: start: 20160217
  5. OCTASA [Concomitant]
     Active Substance: MESALAMINE
     Dosage: 2400 MILLIGRAM, QD
     Route: 048
     Dates: start: 20170523, end: 2017
  6. DIPROBASE                          /01210201/ [Concomitant]
     Indication: RASH PRURITIC
     Dosage: UNK
  7. POTASSIUM CHLORIDE. [Concomitant]
     Active Substance: POTASSIUM CHLORIDE
     Indication: BLOOD POTASSIUM DECREASED
     Dosage: 1 DOSAGE FORM, PRN
     Route: 042
     Dates: start: 20190611, end: 20190620
  8. CANDESARTAN. [Concomitant]
     Active Substance: CANDESARTAN
     Dosage: 8 MILLIGRAM, QD
     Route: 048
  9. METFORMIN [Concomitant]
     Active Substance: METFORMIN HYDROCHLORIDE
     Dosage: 2000 MILLIGRAM, QD
     Route: 048
  10. NERATINIB [Suspect]
     Active Substance: NERATINIB
     Indication: PRODUCT USED FOR UNKNOWN INDICATION
     Dosage: 240 MILLIGRAM, QD
     Route: 048
     Dates: start: 20190403
  11. MACROGOL [Concomitant]
     Active Substance: POLYETHYLENE GLYCOLS
     Dosage: 2 DOSAGE FORM, QD, SACHET
     Route: 065
  12. TRASTUZUMAB EMTANSINE [Suspect]
     Active Substance: ADO-TRASTUZUMAB EMTANSINE
     Indication: BREAST CANCER METASTATIC
     Dosage: 220 MILLIGRAM, Q3W
     Route: 042
     Dates: start: 20180928, end: 20190315
  13. LOPERAMIDE [Concomitant]
     Active Substance: LOPERAMIDE
     Dosage: PRN AS NEEDED.
     Route: 048
     Dates: start: 20160225
  14. CHLORHEXIDINE GLUCONATE. [Concomitant]
     Active Substance: CHLORHEXIDINE GLUCONATE
     Dosage: 0.8 PERCENT, QD (MOUTH WASH)
     Route: 048
     Dates: start: 20160225
  15. ZOPICLONE [Concomitant]
     Active Substance: ZOPICLONE
     Dosage: 3.75 MILLIGRAM, QD
     Route: 048
     Dates: start: 20160217
  16. METOCLOPRAMIDE. [Concomitant]
     Active Substance: METOCLOPRAMIDE
     Dosage: 30 MILLIGRAM, QD
     Route: 048
  17. TINZAPARIN [Concomitant]
     Active Substance: TINZAPARIN
     Dosage: 1 UNK, QD (11000 UNIT)
     Route: 058
     Dates: start: 20180915, end: 20181128
  18. MAGNESIUM GLYCEROPHOSPHATE [Concomitant]
     Active Substance: MAGNESIUM GLYCEROPHOSPHATE
     Indication: HYPOMAGNESAEMIA
     Dosage: 12 MILLIMOLE, QD
     Route: 048
     Dates: start: 20160526, end: 20160530
  19. TRASTUZUMAB. [Suspect]
     Active Substance: TRASTUZUMAB
     Indication: BREAST CANCER METASTATIC
     Dosage: 400 MILLIGRAM, Q3W (MAINTAINENCE DOSE.)
     Route: 042
     Dates: start: 20160225, end: 20160617
  20. TRASTUZUMAB. [Suspect]
     Active Substance: TRASTUZUMAB
     Dosage: 350 MILLIGRAM, Q3W
     Route: 042
     Dates: start: 20160707
  21. LETROZOLE MYLAN [Suspect]
     Active Substance: LETROZOLE
     Indication: PRODUCT USED FOR UNKNOWN INDICATION
     Dosage: 2.5 MILLIGRAM, QD
     Route: 048
     Dates: start: 20160413
  22. PERTUZUMAB. [Suspect]
     Active Substance: PERTUZUMAB
     Dosage: (MAINTAINENCE DOSE)
     Route: 042
     Dates: start: 20160225
  23. DOCETAXEL. [Suspect]
     Active Substance: DOCETAXEL
     Indication: BREAST CANCER METASTATIC
     Dosage: 65 MILLIGRAM, Q3W
     Route: 042
     Dates: start: 20160226, end: 20160226
  24. ZOLEDRONIC ACID [Concomitant]
     Active Substance: ZOLEDRONIC ACID
     Dosage: 3.3 MILLIGRAM, MONTHLY
     Route: 042
     Dates: start: 20160226
  25. BUDESONIDE. [Concomitant]
     Active Substance: BUDESONIDE
     Dosage: 9 MILLIGRAM, QD
     Route: 048
     Dates: start: 20190403
  26. CINACALCET. [Concomitant]
     Active Substance: CINACALCET
     Indication: HYPERCALCAEMIA OF MALIGNANCY
     Dosage: 30 MILLIGRAM, QD
     Route: 048
     Dates: start: 20190413
  27. RIVAROXABAN [Concomitant]
     Active Substance: RIVAROXABAN
     Dosage: 1 DOSAGE FORM, QD
     Route: 048
     Dates: start: 20181128
  28. DOMPERIDONE [Concomitant]
     Active Substance: DOMPERIDONE
     Dosage: 30 MILLIGRAM, QD
     Route: 048
     Dates: start: 20160225
  29. OCTASA [Concomitant]
     Active Substance: MESALAMINE
     Indication: GASTROINTESTINAL MOTILITY DISORDER
     Dosage: 800 MILLIGRAM
     Route: 065
     Dates: start: 20170523
  30. DENOSUMAB [Concomitant]
     Active Substance: DENOSUMAB
     Dosage: 120 MILLIGRAM
     Route: 058
     Dates: start: 20180110
  31. TRASTUZUMAB. [Suspect]
     Active Substance: TRASTUZUMAB
     Dosage: 525 MILLIGRAM, Q3W (LOADING DOSE)
     Route: 042
     Dates: start: 20160225, end: 20160225
  32. TAMOXIFEN [Suspect]
     Active Substance: TAMOXIFEN
     Indication: BREAST CANCER METASTATIC
     Dosage: 20 MILLIGRAM, QD
     Route: 048
     Dates: start: 20180704, end: 20180915
  33. ATORVASTATIN [Concomitant]
     Active Substance: ATORVASTATIN
     Dosage: 20 MILLIGRAM, QD
     Route: 048
  34. DOCUSATE SODIUM. [Concomitant]
     Active Substance: DOCUSATE SODIUM
     Dosage: 400 MILLIGRAM, QD
     Route: 048
  35. SANDO K                            /00209301/ [Concomitant]
     Active Substance: POTASSIUM BICARBONATE\POTASSIUM CHLORIDE
     Dosage: EFFERVESCENT 2 TABLETS
     Route: 048
     Dates: start: 20160322, end: 20160326
  36. AMLODIPINE [Concomitant]
     Active Substance: AMLODIPINE BESYLATE
     Indication: HYPERTENSION
     Dosage: 5 MILLIGRAM, QD
  37. TRIMETHOPRIM. [Concomitant]
     Active Substance: TRIMETHOPRIM
     Indication: URINARY TRACT INFECTION
     Dosage: UNK
     Route: 048
     Dates: start: 20190412, end: 20190414
  38. PHOSPHATE SANDOZ [Concomitant]
     Active Substance: SODIUM PHOSPHATE, MONOBASIC, ANHYDROUS
     Indication: BLOOD PHOSPHORUS DECREASED
     Dosage: UNK
     Route: 048
     Dates: start: 20190423, end: 20190425

REACTIONS (11)
  - Diarrhoea [Recovered/Resolved]
  - Vomiting [Recovered/Resolved]
  - Acute kidney injury [Recovered/Resolved]
  - Decreased appetite [Not Recovered/Not Resolved]
  - Cholelithiasis [Not Recovered/Not Resolved]
  - Back pain [Not Recovered/Not Resolved]
  - Rash pruritic [Recovered/Resolved]
  - Condition aggravated [Not Recovered/Not Resolved]
  - Rectal haemorrhage [Not Recovered/Not Resolved]
  - Weight decreased [Not Recovered/Not Resolved]
  - Hypomagnesaemia [Recovered/Resolved]

NARRATIVE: CASE EVENT DATE: 20160323
